FAERS Safety Report 8476466-7 (Version None)
Quarter: 2012Q2

REPORT INFORMATION
  Report Type: 
  Country: None (occurrence: None)
  Receive Date: 20120628
  Receipt Date: 20120620
  Transmission Date: 20120825
  Serious: Yes (Other)
  Sender: FDA-Public Use
  Company Number: US-BAYER-2011-124414

PATIENT
  Sex: Male
  Weight: 74 kg

DRUGS (6)
  1. SARGRAMOSTIM [Suspect]
     Dosage: 250 ?G, QD DAYS 1-14
     Route: 058
     Dates: start: 20110916, end: 20110929
  2. SARGRAMOSTIM [Suspect]
     Indication: MALIGNANT MELANOMA
     Dosage: 250 ?G, QD DAYS 1-14
     Route: 058
     Dates: start: 20110422
  3. MDX-010 [Suspect]
     Indication: MALIGNANT MELANOMA
     Dosage: 10 MG/KG, ONCE DAY 1 OF 21 DAY CYCLE
     Route: 042
     Dates: start: 20110422, end: 20110422
  4. MDX-010 [Suspect]
     Dosage: 10 MG/KG, ONCE DAY 1 OF 21 DAY CYCLE
     Route: 042
     Dates: start: 20110916, end: 20110916
  5. SARGRAMOSTIM [Suspect]
     Dosage: 250 ?G, UNK
     Route: 058
     Dates: end: 20110817
  6. MDX-010 [Suspect]
     Dosage: 10 MG/KG, ONCE DAY 1 OF 21 DAY CYCLE
     Route: 042
     Dates: start: 20110825, end: 20110825

REACTIONS (5)
  - WEIGHT DECREASED [None]
  - DEHYDRATION [None]
  - DIARRHOEA [None]
  - MUSCULAR WEAKNESS [None]
  - COLITIS [None]
